FAERS Safety Report 6197045-0 (Version None)
Quarter: 2009Q2

REPORT INFORMATION
  Report Type: 
  Country: None (occurrence: None)
  Receive Date: 20090520
  Receipt Date: 20090514
  Transmission Date: 20091009
  Serious: Yes (Hospitalization)
  Sender: FDA-Public Use
  Company Number: NL-SANOFI-SYNTHELABO-F01200900470

PATIENT
  Sex: Female

DRUGS (4)
  1. GRANISETRON HCL [Concomitant]
  2. IRINOTECAN HCL [Suspect]
     Dosage: UNK
     Route: 065
  3. CAPECITABINE [Suspect]
     Dosage: UNK
     Route: 048
  4. OXALIPLATIN [Suspect]
     Indication: COLORECTAL CANCER METASTATIC
     Route: 041
     Dates: start: 20040617, end: 20040617

REACTIONS (1)
  - ILL-DEFINED DISORDER [None]
